FAERS Safety Report 14061278 (Version 3)
Quarter: 2018Q1

REPORT INFORMATION
  Report Type: Report from Study
  Country: US (occurrence: US)
  Receive Date: 20171009
  Receipt Date: 20180124
  Transmission Date: 20180508
  Serious: Yes (Hospitalization, Other)
  Sender: FDA-Public Use
  Company Number: US-UCBSA-2017023884

PATIENT
  Sex: Male

DRUGS (4)
  1. LEVETIRACETAM. [Suspect]
     Active Substance: LEVETIRACETAM
     Indication: SEIZURE
     Dosage: DOSE: 500 MG
  2. DILANTIN [Concomitant]
     Active Substance: PHENYTOIN
     Indication: PRODUCT USED FOR UNKNOWN INDICATION
  3. LEVETIRACETAM. [Suspect]
     Active Substance: LEVETIRACETAM
     Dosage: DOSE: 750 MG
  4. TRAMADOL. [Suspect]
     Active Substance: TRAMADOL
     Indication: PAIN
     Dosage: UNK

REACTIONS (16)
  - Mood swings [Unknown]
  - Skull fracture [Unknown]
  - Seizure [Unknown]
  - Memory impairment [Unknown]
  - Cerebral haemorrhage [Unknown]
  - Paranoia [Unknown]
  - Personality change [Unknown]
  - Brain oedema [Unknown]
  - Generalised tonic-clonic seizure [Unknown]
  - Aggression [Unknown]
  - Psychotic disorder [Unknown]
  - Adverse reaction [Unknown]
  - Contusion [Unknown]
  - Condition aggravated [Recovered/Resolved]
  - Withdrawal syndrome [Recovered/Resolved]
  - Convulsive threshold lowered [Unknown]
